FAERS Safety Report 13685054 (Version 3)
Quarter: 2017Q3

REPORT INFORMATION
  Report Type: Spontaneous
  Country: US (occurrence: US)
  Receive Date: 20170623
  Receipt Date: 20170831
  Transmission Date: 20171127
  Serious: Yes (Other)
  Sender: FDA-Public Use
  Company Number: US-ELI_LILLY_AND_COMPANY-US201706007872

PATIENT
  Age: 80 Year
  Sex: Female

DRUGS (1)
  1. FORTEO [Suspect]
     Active Substance: TERIPARATIDE
     Indication: SPINAL FRACTURE
     Dosage: 20 UG, UNKNOWN
     Route: 058
     Dates: start: 201602, end: 201612

REACTIONS (6)
  - Deep vein thrombosis [Unknown]
  - Lymphoedema [Unknown]
  - Sarcoma metastatic [Unknown]
  - Cellulitis [Unknown]
  - Off label use [Unknown]
  - Post procedural swelling [Unknown]
